FAERS Safety Report 12967946 (Version 1)
Quarter: 2016Q4

REPORT INFORMATION
  Report Type: Spontaneous
  Country: US (occurrence: US)
  Receive Date: 20161122
  Receipt Date: 20161122
  Transmission Date: 20170207
  Serious: Yes (Disabling, Other)
  Sender: FDA-Public Use
  Company Number: None

PATIENT
  Age: 70 Year
  Sex: Male
  Weight: 74.25 kg

DRUGS (10)
  1. OXYCODONE [Concomitant]
     Active Substance: OXYCODONE
  2. FISH OIL [Concomitant]
     Active Substance: FISH OIL
  3. FLUCONAZOLE. [Concomitant]
     Active Substance: FLUCONAZOLE
  4. ATAZANAVIR [Concomitant]
     Active Substance: ATAZANAVIR
  5. LAMIVUDINE. [Concomitant]
     Active Substance: LAMIVUDINE
  6. KENALOG [Suspect]
     Active Substance: TRIAMCINOLONE ACETONIDE
     Indication: BACK PAIN
     Route: 008
     Dates: start: 20160915, end: 20160915
  7. CENTRUM SILVER [Concomitant]
     Active Substance: MINERALS\VITAMINS
  8. RALTEGRAVIR. [Concomitant]
     Active Substance: RALTEGRAVIR
  9. RITONAVIR. [Concomitant]
     Active Substance: RITONAVIR
  10. CLOTRIMAZOLE. [Concomitant]
     Active Substance: CLOTRIMAZOLE

REACTIONS (11)
  - Skin candida [None]
  - Muscular weakness [None]
  - Oesophageal candidiasis [None]
  - Hyperhidrosis [None]
  - Pain of skin [None]
  - Oral candidiasis [None]
  - Gait disturbance [None]
  - Candida infection [None]
  - Night sweats [None]
  - Rash [None]
  - Injection site pain [None]

NARRATIVE: CASE EVENT DATE: 20160915
